FAERS Safety Report 10427329 (Version 2)
Quarter: 2014Q3

REPORT INFORMATION
  Report Type: Spontaneous
  Country: CH (occurrence: CH)
  Receive Date: 20140903
  Receipt Date: 20140910
  Transmission Date: 20150326
  Serious: Yes (Life-Threatening, Hospitalization, Other)
  Sender: FDA-Public Use
  Company Number: CH-ASTRAZENECA-2014SE64613

PATIENT
  Age: 8437 Day
  Sex: Male

DRUGS (3)
  1. SUFENTA [Concomitant]
     Active Substance: SUFENTANIL CITRATE
     Indication: SEDATION
     Dates: start: 20140706
  2. DISOPRIVAN [Suspect]
     Active Substance: PROPOFOL
     Indication: SEDATION
     Route: 042
     Dates: start: 20140706, end: 20140709
  3. DORMICUM [Concomitant]
     Active Substance: MIDAZOLAM\MIDAZOLAM HYDROCHLORIDE

REACTIONS (6)
  - Poor peripheral circulation [Unknown]
  - Long QT syndrome [Unknown]
  - Rhabdomyolysis [Recovered/Resolved]
  - Hyperlactacidaemia [Unknown]
  - Ventricular tachycardia [Unknown]
  - Cytomegalovirus infection [Unknown]

NARRATIVE: CASE EVENT DATE: 20140709
